FAERS Safety Report 11995631 (Version 1)
Quarter: 2016Q1

REPORT INFORMATION
  Report Type: Report from Study
  Country: DE (occurrence: DE)
  Receive Date: 20160203
  Receipt Date: 20160203
  Transmission Date: 20160526
  Serious: Yes (Hospitalization)
  Sender: FDA-Public Use
  Company Number: DE-ABBVIE-16K-062-1549145-00

PATIENT
  Age: 66 Year
  Sex: Female

DRUGS (10)
  1. HUMIRA [Suspect]
     Active Substance: ADALIMUMAB
     Indication: RHEUMATOID ARTHRITIS
     Route: 058
     Dates: start: 200405, end: 200407
  2. LEFLUNOMID [Suspect]
     Active Substance: LEFLUNOMIDE
     Indication: PRODUCT USED FOR UNKNOWN INDICATION
     Route: 065
     Dates: start: 2014
  3. MTX [Concomitant]
     Active Substance: METHOTREXATE SODIUM
     Indication: PRODUCT USED FOR UNKNOWN INDICATION
     Dates: start: 200403
  4. MTX [Concomitant]
     Active Substance: METHOTREXATE SODIUM
     Dates: end: 2012
  5. MTX [Concomitant]
     Active Substance: METHOTREXATE SODIUM
  6. MABTHERA [Concomitant]
     Active Substance: RITUXIMAB
     Dates: start: 200808, end: 200808
  7. MTX [Concomitant]
     Active Substance: METHOTREXATE SODIUM
     Dates: start: 2012
  8. MABTHERA [Concomitant]
     Active Substance: RITUXIMAB
     Indication: PRODUCT USED FOR UNKNOWN INDICATION
     Dates: start: 200703, end: 200703
  9. MABTHERA [Concomitant]
     Active Substance: RITUXIMAB
     Dates: start: 200802, end: 200802
  10. MABTHERA [Concomitant]
     Active Substance: RITUXIMAB
     Dates: start: 200904, end: 200904

REACTIONS (1)
  - Melaena [Unknown]

NARRATIVE: CASE EVENT DATE: 20150311
